FAERS Safety Report 20964048 (Version 3)
Quarter: 2025Q3

REPORT INFORMATION
  Report Type: Spontaneous
  Country: EU (occurrence: EU)
  Receive Date: 20220615
  Receipt Date: 20250804
  Transmission Date: 20251020
  Serious: Yes (Other)
  Sender: MYLAN
  Company Number: None

PATIENT
  Age: 55 Year
  Sex: Female
  Weight: 72 kg

DRUGS (11)
  1. DEXAMETHASONE [Suspect]
     Active Substance: DEXAMETHASONE
     Indication: Pain prophylaxis
     Dates: start: 20220429, end: 20220429
  2. CISATRACURIUM [Suspect]
     Active Substance: CISATRACURIUM
     Indication: Anaesthesia
     Dates: start: 20220429, end: 20220429
  3. CEFAZOLIN SODIUM [Suspect]
     Active Substance: CEFAZOLIN SODIUM
     Indication: Antibiotic prophylaxis
     Dates: start: 20220429, end: 20220429
  4. NEFOPAM [Suspect]
     Active Substance: NEFOPAM
     Indication: Pain prophylaxis
     Dates: start: 20220429, end: 20220429
  5. SUFENTANIL [Suspect]
     Active Substance: SUFENTANIL
     Indication: Anaesthesia
     Dates: start: 20220429, end: 20220429
  6. SUFENTANIL [Suspect]
     Active Substance: SUFENTANIL
  7. KETAMINE [Suspect]
     Active Substance: KETAMINE
     Indication: Anaesthesia
     Dates: start: 20220429, end: 20220429
  8. ACETAMINOPHEN [Suspect]
     Active Substance: ACETAMINOPHEN
     Indication: Pain prophylaxis
     Dates: start: 20220429, end: 20220429
  9. ACETAMINOPHEN [Suspect]
     Active Substance: ACETAMINOPHEN
  10. PROPOFOL [Suspect]
     Active Substance: PROPOFOL
     Indication: Anaesthesia
     Dates: start: 20220429, end: 20220429
  11. TRANEXAMIC ACID [Suspect]
     Active Substance: TRANEXAMIC ACID
     Indication: Haemorrhage prophylaxis
     Dates: start: 20220429, end: 20220429

REACTIONS (1)
  - Rash [Recovered/Resolved]

NARRATIVE: CASE EVENT DATE: 20220429
